FAERS Safety Report 10034583 (Version 1)
Quarter: 2014Q1

REPORT INFORMATION
  Report Type: Spontaneous
  Country: US (occurrence: US)
  Receive Date: 20140325
  Receipt Date: 20140325
  Transmission Date: 20141002
  Serious: Yes (Other)
  Sender: FDA-Public Use
  Company Number: US-ORION CORPORATION ORION PHARMA-ENTC2014-0097

PATIENT
  Sex: Female

DRUGS (8)
  1. STALEVO [Suspect]
     Indication: PARKINSON^S DISEASE
     Dosage: 7AM 200 MG, 10AM 100 MG, 12PM 150 MG, 2:30PM 125MG, 4:30PM 125 MG, 8PM 150 MG
     Route: 048
  2. STALEVO [Suspect]
     Dosage: 7AM 200MG, 10AM 100 MG, 12PM 125 MG, 2:30PM 125 MG, 4:30PM 125 MG, 8PM 125MG
     Route: 048
  3. MYRBETRIQ [Concomitant]
     Route: 065
  4. OMEPRAZOLE [Concomitant]
     Route: 065
  5. NEUPRO [Concomitant]
     Route: 065
  6. SEROQUEL [Concomitant]
     Route: 065
  7. PARCOPA [Concomitant]
     Dosage: STRENGTH: 25/100 MG
     Route: 065
  8. ASA [Concomitant]
     Route: 065

REACTIONS (9)
  - Drug ineffective [Unknown]
  - Product quality issue [Unknown]
  - Intentional drug misuse [Unknown]
  - Parkinson^s disease [Unknown]
  - Dizziness [Unknown]
  - Nausea [Unknown]
  - Abdominal pain upper [Unknown]
  - Diarrhoea [Unknown]
  - Hyperventilation [Unknown]
